FAERS Safety Report 20704166 (Version 5)
Quarter: 2024Q3

REPORT INFORMATION
  Report Type: Spontaneous
  Country: US (occurrence: US)
  Receive Date: 20220413
  Receipt Date: 20240906
  Transmission Date: 20241017
  Serious: Yes (Hospitalization, Other)
  Sender: BRISTOL MYERS SQUIBB
  Company Number: US-CELGENE-USA-20211202402

PATIENT
  Age: 84 Year
  Sex: Female
  Weight: 77.3 kg

DRUGS (13)
  1. AZACITIDINE [Suspect]
     Active Substance: AZACITIDINE
     Indication: Myelodysplastic syndrome
     Dosage: 75 MG/M2 7 DAYS WITHIN THE FIRST 9 CALENDER DAYS OF EACH 28 DAY CYCLE, EVERY 1 DAYS
     Route: 058
     Dates: start: 20211118
  2. ATENOLOL [Concomitant]
     Active Substance: ATENOLOL
     Indication: Arrhythmia
     Route: 048
     Dates: start: 20211118
  3. ACYCLOVIR [Concomitant]
     Active Substance: ACYCLOVIR
     Indication: Infection prophylaxis
     Route: 048
     Dates: start: 20211116
  4. ASCORBIC ACID [Concomitant]
     Active Substance: ASCORBIC ACID
     Indication: Vitamin supplementation
     Dates: start: 20200915, end: 20211221
  5. ASPIRIN [Concomitant]
     Active Substance: ASPIRIN
     Indication: Cardiovascular event prophylaxis
     Dates: start: 20170717
  6. AZELASTINE [Concomitant]
     Active Substance: AZELASTINE\AZELASTINE HYDROCHLORIDE
     Indication: Nasal congestion
     Dosage: 2 SPRAY, EVERY 2 DAYS
     Dates: start: 20210701
  7. VITAMIN B12 [Concomitant]
     Active Substance: CYANOCOBALAMIN
     Indication: Vitamin supplementation
     Dosage: 100 MCG, EVERY 1 DAYS
     Dates: start: 20121120
  8. DORZOLAMIDE [Concomitant]
     Active Substance: DORZOLAMIDE
     Indication: Glaucoma
     Dosage: 1 GTT, EVERY 2 DAYS
     Dates: start: 20211001
  9. LATANOPROST [Concomitant]
     Active Substance: LATANOPROST
     Indication: Glaucoma
     Dosage: EVERY 1 DAYS
     Dates: start: 20191029
  10. MECLIZINE HYDROCHLORIDE [Concomitant]
     Active Substance: MECLIZINE HYDROCHLORIDE
     Indication: Vertigo
     Dosage: 25 MG, AS NECESSARY
     Dates: start: 20160303
  11. VITAMINS NOS [Concomitant]
     Active Substance: VITAMINS
     Indication: Vitamin supplementation
     Dosage: 1 TAB, EVERY 1 DAYS
     Dates: start: 20121120
  12. ZINC [Concomitant]
     Active Substance: ZINC
     Indication: Vitamin supplementation
     Dosage: 50 MG, EVERY 1 DAYS
     Dates: start: 20210316
  13. ALLOPURINOL [Concomitant]
     Active Substance: ALLOPURINOL
     Indication: Prophylaxis
     Dosage: 50 MG, EVERY 1 DAYS
     Dates: start: 20211118

REACTIONS (3)
  - Nausea [Recovered/Resolved]
  - Febrile neutropenia [Recovered/Resolved]
  - Soft tissue infection [Recovered/Resolved]

NARRATIVE: CASE EVENT DATE: 20211129
